FAERS Safety Report 5317975-9 (Version None)
Quarter: 2007Q2

REPORT INFORMATION
  Report Type: 
  Country: None (occurrence: None)
  Receive Date: 20070504
  Receipt Date: 20070504
  Transmission Date: 20071010
  Serious: Yes (Hospitalization)
  Sender: FDA-Public Use
  Company Number: None

PATIENT
  Age: 52 Year
  Sex: Male
  Weight: 153.7694 kg

DRUGS (3)
  1. ASPIRIN [Suspect]
     Indication: DIABETES MELLITUS
     Dosage: 81 MG DAILY PO
     Route: 048
     Dates: start: 20050701, end: 20070115
  2. ASPIRIN [Suspect]
     Indication: HYPERTENSION
     Dosage: 81 MG DAILY PO
     Route: 048
     Dates: start: 20050701, end: 20070115
  3. ASPIRIN [Suspect]
     Indication: PROPHYLAXIS
     Dosage: 81 MG DAILY PO
     Route: 048
     Dates: start: 20050701, end: 20070115

REACTIONS (2)
  - ANAEMIA [None]
  - GASTROINTESTINAL HAEMORRHAGE [None]
